FAERS Safety Report 10971705 (Version 2)
Quarter: 2015Q2

REPORT INFORMATION
  Report Type: Spontaneous
  Country: US (occurrence: US)
  Receive Date: 20150331
  Receipt Date: 20150403
  Transmission Date: 20150821
  Serious: Yes (Other)
  Sender: FDA-Public Use
  Company Number: US-PURDUE-USA-2015-0122178

PATIENT
  Age: 80 Year
  Sex: Female
  Weight: 40.82 kg

DRUGS (3)
  1. BUTRANS [Suspect]
     Active Substance: BUPRENORPHINE
     Indication: ANALGESIC THERAPY
     Dosage: 7.5 MCG/HR, WEEKLY
     Route: 062
     Dates: start: 20150326, end: 20150326
  2. OXYCODONE [Concomitant]
     Active Substance: OXYCODONE
     Indication: ANALGESIC THERAPY
     Dosage: 2.5 MG, BID
     Route: 048
     Dates: start: 201501
  3. BUTRANS [Suspect]
     Active Substance: BUPRENORPHINE
     Dosage: 5 MCG/HR, WEEKLY
     Route: 062
     Dates: start: 20150122, end: 20150325

REACTIONS (4)
  - Osteoporosis [Unknown]
  - Inadequate analgesia [Recovered/Resolved]
  - Drug effect decreased [Recovered/Resolved]
  - Dyspnoea [Recovered/Resolved]

NARRATIVE: CASE EVENT DATE: 20150322
